FAERS Safety Report 10758829 (Version 2)
Quarter: 2015Q4

REPORT INFORMATION
  Report Type: Spontaneous
  Country: US (occurrence: US)
  Receive Date: 20150203
  Receipt Date: 20151001
  Transmission Date: 20160304
  Serious: No
  Sender: FDA-Public Use
  Company Number: US-PFIZER INC-2015035591

PATIENT
  Age: 74 Year
  Sex: Male
  Weight: 81.63 kg

DRUGS (2)
  1. SUTENT [Suspect]
     Active Substance: SUNITINIB MALATE
     Indication: HEPATIC CANCER
     Dosage: 37.5 MG, DAILY
     Dates: start: 20140611
  2. SUTENT [Suspect]
     Active Substance: SUNITINIB MALATE
     Indication: BREAST CANCER
     Dosage: 37.5 MG, CYCLIC (2 WEEKS OFF, 4 WEEKS ON)
     Route: 048
     Dates: start: 20140611

REACTIONS (5)
  - Product use issue [Unknown]
  - Dry skin [Unknown]
  - Diarrhoea [Unknown]
  - Fatigue [Unknown]
  - Sinus disorder [Unknown]

NARRATIVE: CASE EVENT DATE: 20140721
